FAERS Safety Report 19351246 (Version 1)
Quarter: 2021Q2

REPORT INFORMATION
  Report Type: Other
  Country: IN (occurrence: IN)
  Receive Date: 20210531
  Receipt Date: 20210531
  Transmission Date: 20210717
  Serious: Yes (Other)
  Sender: FDA-Public Use
  Company Number: IN-ROCHE-2837459

PATIENT

DRUGS (6)
  1. SEVOFLURANE. [Suspect]
     Active Substance: SEVOFLURANE
     Indication: ANAESTHESIA
     Route: 065
  2. TRICLOFOS [Suspect]
     Active Substance: TRICLOFOS
     Indication: PREMEDICATION
     Dosage: 75 MG/KG FOR CHILDREN WEIGHING LESS THAN 20 KG
     Route: 048
  3. KETAMINE [Suspect]
     Active Substance: KETAMINE
     Indication: SEDATION
     Route: 065
  4. DIAZEPAM. [Suspect]
     Active Substance: DIAZEPAM
     Indication: PREMEDICATION
     Dosage: DIAZEPAM 0.1 MG/KG FOR CHILDREN ABOVE 20 KGS
     Route: 065
  5. DEXMEDETOMIDINE. [Suspect]
     Active Substance: DEXMEDETOMIDINE
     Indication: SEDATION
     Route: 065
  6. PROPOFOL. [Suspect]
     Active Substance: PROPOFOL
     Indication: SEDATION
     Route: 065

REACTIONS (5)
  - Hypotension [Recovered/Resolved]
  - Pyrexia [Unknown]
  - Bradycardia [Recovered/Resolved]
  - Vomiting [Unknown]
  - Bronchospasm [Recovered/Resolved]
